FAERS Safety Report 6483261-7 (Version None)
Quarter: 2009Q4

REPORT INFORMATION
  Report Type: 
  Country: None (occurrence: None)
  Receive Date: 20091209
  Receipt Date: 20091202
  Transmission Date: 20100525
  Serious: Yes (Hospitalization)
  Sender: FDA-Public Use
  Company Number: CA-ELI_LILLY_AND_COMPANY-CA200912000933

PATIENT
  Age: 65 Year
  Sex: Female

DRUGS (18)
  1. FORTEO [Suspect]
     Indication: OSTEOPOROSIS
     Dosage: 20 UG, DAILY (1/D)
     Dates: start: 20090106
  2. ALTACE [Concomitant]
  3. NORVASC [Concomitant]
  4. CHLORPROMAZINE [Concomitant]
  5. NOVO-SERTRALINE [Concomitant]
  6. DOMPERIDONE [Concomitant]
  7. HYDROXYQUINOLINE [Concomitant]
  8. PLAQUENIL [Concomitant]
  9. LYRICA [Concomitant]
  10. PREDNISONE [Concomitant]
  11. METHOTREXATE [Concomitant]
  12. COUMADIN [Concomitant]
  13. ASCORBIC ACID [Concomitant]
  14. VITAMIN D [Concomitant]
  15. VITAMIN E /001105/ [Concomitant]
  16. MULTIVITAMIN                       /00831701/ [Concomitant]
  17. CALCIUM                                 /N/A/ [Concomitant]
  18. FOLIC ACID [Concomitant]

REACTIONS (1)
  - INTESTINAL OBSTRUCTION [None]
